FAERS Safety Report 10230738 (Version 1)
Quarter: 2014Q2

REPORT INFORMATION
  Report Type: Spontaneous
  Country: US (occurrence: None)
  Receive Date: 20140610
  Receipt Date: 20140610
  Transmission Date: 20141212
  Serious: Yes (Disabling, Other)
  Sender: FDA-Public Use
  Company Number: None

PATIENT
  Age: 61 Year
  Sex: Female
  Weight: 61.24 kg

DRUGS (1)
  1. AZITHROMYCIN [Suspect]
     Indication: CYSTITIS
     Route: 048
     Dates: start: 20140604, end: 20140606

REACTIONS (6)
  - Diarrhoea [None]
  - Abdominal pain [None]
  - Haematochezia [None]
  - Diverticulitis [None]
  - Inflammation [None]
  - Asthenia [None]
